FAERS Safety Report 19326645 (Version 1)
Quarter: 2021Q2

REPORT INFORMATION
  Report Type: Spontaneous
  Country: US (occurrence: US)
  Receive Date: 20210528
  Receipt Date: 20210528
  Transmission Date: 20210717
  Serious: Yes (Other)
  Sender: FDA-Public Use
  Company Number: US-DRREDDYS-USA/USA/21/0136028

PATIENT
  Age: 38 Week
  Sex: Female
  Weight: 2.46 kg

DRUGS (3)
  1. NITRIC OXIDE. [Suspect]
     Active Substance: NITRIC OXIDE
     Indication: PULMONARY HYPERTENSION
  2. TREPROSTINIL. [Suspect]
     Active Substance: TREPROSTINIL
     Indication: PULMONARY HYPERTENSION
     Dosage: 4 NG/KG/MIN ON DAY 8 OF LIFE
     Route: 058
  3. TREPROSTINIL. [Suspect]
     Active Substance: TREPROSTINIL
     Dosage: 30 NG/KG/MIN (200 MCG/ML)
     Route: 058

REACTIONS (1)
  - Drug ineffective [Unknown]
